FAERS Safety Report 12140821 (Version 2)
Quarter: 2016Q1

REPORT INFORMATION
  Report Type: Spontaneous
  Country: IT (occurrence: IT)
  Receive Date: 20160303
  Receipt Date: 20160317
  Transmission Date: 20160526
  Serious: Yes (Other)
  Sender: FDA-Public Use
  Company Number: IT-SA-2016SA037038

PATIENT
  Age: 82 Year
  Sex: Female

DRUGS (6)
  1. PRADAXA [Suspect]
     Active Substance: DABIGATRAN ETEXILATE MESYLATE
     Route: 065
  2. LUVION [Suspect]
     Active Substance: CANRENONE
     Route: 065
  3. GIANT [Suspect]
     Active Substance: AMLODIPINE BESYLATE\OLMESARTAN MEDOXOMIL
     Route: 065
  4. LASIX [Suspect]
     Active Substance: FUROSEMIDE
     Route: 065
  5. ALMARYTM [Suspect]
     Active Substance: FLECAINIDE ACETATE
     Route: 065
  6. TENORMIN [Suspect]
     Active Substance: ATENOLOL
     Route: 065

REACTIONS (5)
  - Ischaemic stroke [Unknown]
  - Blood pressure increased [Unknown]
  - On and off phenomenon [Unknown]
  - Anxiety [Unknown]
  - Malaise [Unknown]

NARRATIVE: CASE EVENT DATE: 2013
